FAERS Safety Report 19718085 (Version 1)
Quarter: 2021Q3

REPORT INFORMATION
  Report Type: Spontaneous
  Country: US (occurrence: US)
  Receive Date: 20210819
  Receipt Date: 20210819
  Transmission Date: 20211014
  Serious: No
  Sender: FDA-Public Use
  Company Number: US-CELLTRION INC.-2021US010689

PATIENT

DRUGS (3)
  1. TRUXIMA [Suspect]
     Active Substance: RITUXIMAB-ABBS
     Indication: DRUG THERAPY
     Dosage: 1000 MG, Q4WEEKS
     Dates: start: 20210625
  2. TRUXIMA [Suspect]
     Active Substance: RITUXIMAB-ABBS
     Indication: GLOMERULONEPHRITIS MEMBRANOUS
  3. TRUXIMA [Suspect]
     Active Substance: RITUXIMAB-ABBS
     Indication: RENAL TRANSPLANT
     Dosage: 1000 MG, Q4WEEKS
     Dates: start: 20210726

REACTIONS (1)
  - Off label use [Unknown]
